FAERS Safety Report 5193854-5 (Version None)
Quarter: 2006Q4

REPORT INFORMATION
  Report Type: 
  Country: None (occurrence: None)
  Receive Date: 20061222
  Receipt Date: 20061109
  Transmission Date: 20070319
  Serious: Yes (Hospitalization, Other)
  Sender: FDA-Public Use
  Company Number: 2006142191

PATIENT
  Age: 41 Year
  Sex: Male
  Weight: 99.3377 kg

DRUGS (1)
  1. BEXTRA [Suspect]
     Indication: ARTHRITIS
     Dosage: 20MG OR 40MG (20 MG, FREQUENCY: 1 OR 2), ORAL
     Route: 048
     Dates: start: 20020801

REACTIONS (2)
  - CORONARY ARTERY OCCLUSION [None]
  - THROMBOSIS [None]
